FAERS Safety Report 14482645 (Version 1)
Quarter: 2018Q1

REPORT INFORMATION
  Report Type: Spontaneous
  Country: JP (occurrence: JP)
  Receive Date: 20180203
  Receipt Date: 20180203
  Transmission Date: 20180509
  Serious: Yes (Death, Other)
  Sender: FDA-Public Use
  Company Number: JP-AMGEN-JPNSP2018015543

PATIENT
  Age: 57 Year
  Sex: Female

DRUGS (9)
  1. POTELIGEO [Suspect]
     Active Substance: MOGAMULIZUMAB
     Indication: ADULT T-CELL LYMPHOMA/LEUKAEMIA
     Dosage: UNK
     Route: 041
  2. AZACITIDINE. [Suspect]
     Active Substance: AZACITIDINE
     Indication: PRODUCT USED FOR UNKNOWN INDICATION
     Dosage: UNK
     Route: 041
  3. GRAN [Suspect]
     Active Substance: FILGRASTIM
     Indication: ACUTE MYELOID LEUKAEMIA
     Dosage: UNK
     Route: 065
  4. ACLARUBICIN HYDROCHLORIDE [Suspect]
     Active Substance: ACLARUBICIN HYDROCHLORIDE
     Indication: ACUTE MYELOID LEUKAEMIA
     Dosage: UNK
     Route: 065
  5. MELPHALAN. [Suspect]
     Active Substance: MELPHALAN
     Indication: PRODUCT USED FOR UNKNOWN INDICATION
     Dosage: UNK
     Route: 065
  6. FLUDARABINE PHOSPHATE. [Suspect]
     Active Substance: FLUDARABINE PHOSPHATE
     Indication: PRODUCT USED FOR UNKNOWN INDICATION
     Dosage: UNK
     Route: 065
  7. CYTARABINE. [Suspect]
     Active Substance: CYTARABINE
     Indication: ACUTE MYELOID LEUKAEMIA
     Dosage: UNK
     Route: 065
  8. G-LASTA [Suspect]
     Active Substance: PEGFILGRASTIM
     Indication: ACUTE MYELOID LEUKAEMIA
     Dosage: UNK UNK, UNK
     Route: 065
  9. ADRENAL [Concomitant]
     Active Substance: EPINEPHRINE
     Indication: ACUTE GRAFT VERSUS HOST DISEASE
     Dosage: UNK
     Route: 065

REACTIONS (10)
  - Adenovirus infection [Unknown]
  - Thrombosis [Unknown]
  - Acute graft versus host disease [Recovering/Resolving]
  - Pneumonia [Unknown]
  - Respiratory failure [Unknown]
  - Death [Fatal]
  - Engraft failure [Unknown]
  - Renal haemorrhage [Unknown]
  - Postrenal failure [Unknown]
  - Pulmonary haemorrhage [Unknown]
